FAERS Safety Report 19451787 (Version 1)
Quarter: 2021Q2

REPORT INFORMATION
  Report Type: Spontaneous
  Country: US (occurrence: US)
  Receive Date: 20210623
  Receipt Date: 20210623
  Transmission Date: 20210717
  Serious: No
  Sender: FDA-Public Use
  Company Number: US-TEVA-2021-US-1922601

PATIENT
  Age: 54 Year
  Sex: Female
  Weight: 88.45 kg

DRUGS (2)
  1. ESTRADIOL TEVA [Suspect]
     Active Substance: ESTRADIOL
     Dosage: 2 MILLIGRAM DAILY; BY MOUTH
     Route: 048
     Dates: end: 202105
  2. ESTRADIOL TEVA [Suspect]
     Active Substance: ESTRADIOL
     Indication: HORMONE REPLACEMENT THERAPY
     Dosage: 1 MILLIGRAM DAILY; BY MOUTH
     Route: 048

REACTIONS (1)
  - Drug ineffective [Unknown]
